FAERS Safety Report 12366304 (Version 1)
Quarter: 2016Q2

REPORT INFORMATION
  Report Type: Spontaneous
  Country: US (occurrence: US)
  Receive Date: 20160513
  Receipt Date: 20160513
  Transmission Date: 20160815
  Serious: No
  Sender: FDA-Public Use
  Company Number: US-IROKO PHARMACEUTICALS LLC-US-I09001-16-00039

PATIENT
  Age: 45 Year
  Sex: Female

DRUGS (2)
  1. ZORVOLEX [Suspect]
     Active Substance: DICLOFENAC
     Indication: PAIN IN EXTREMITY
  2. ZORVOLEX [Suspect]
     Active Substance: DICLOFENAC
     Indication: NECK PAIN
     Route: 065
     Dates: start: 20160308, end: 20160308

REACTIONS (2)
  - Pruritus generalised [Recovered/Resolved]
  - Nausea [Recovered/Resolved]

NARRATIVE: CASE EVENT DATE: 20160308
